FAERS Safety Report 6938890-0 (Version None)
Quarter: 2010Q3

REPORT INFORMATION
  Report Type: 
  Country: None (occurrence: None)
  Receive Date: 20100824
  Receipt Date: 20100816
  Transmission Date: 20110219
  Serious: Yes (Other)
  Sender: FDA-Public Use
  Company Number: A0873536A

PATIENT
  Age: 82 Year
  Sex: Female

DRUGS (4)
  1. PROMACTA [Suspect]
     Indication: IDIOPATHIC THROMBOCYTOPENIC PURPURA
     Dosage: 50MG PER DAY
     Route: 048
     Dates: start: 20100301, end: 20100713
  2. IMMUNE GLOBULIN INTRAVENOUS (HUMAN) [Concomitant]
     Indication: IDIOPATHIC THROMBOCYTOPENIC PURPURA
     Dates: start: 20080101
  3. DILTIAZEM [Concomitant]
  4. PRILOSEC [Concomitant]
     Dosage: 20MG TWICE PER DAY

REACTIONS (9)
  - ANXIETY [None]
  - CONTUSION [None]
  - DEPRESSION [None]
  - ECCHYMOSIS [None]
  - HAEMORRHAGE [None]
  - HEADACHE [None]
  - PLATELET COUNT ABNORMAL [None]
  - SPLENECTOMY [None]
  - TREMOR [None]
